FAERS Safety Report 6408118-9 (Version None)
Quarter: 2009Q4

REPORT INFORMATION
  Report Type: 
  Country: None (occurrence: None)
  Receive Date: 20091019
  Receipt Date: 20091005
  Transmission Date: 20100525
  Serious: Yes (Hospitalization)
  Sender: FDA-Public Use
  Company Number: A-US2009-27183

PATIENT
  Age: 88 Year
  Sex: Male

DRUGS (17)
  1. TRACLEER [Suspect]
     Indication: PULMONARY ARTERIAL HYPERTENSION
     Dosage: 125 MG, BID, ORAL; 62.5 MG, BID, ORAL
     Route: 048
     Dates: start: 20090428, end: 20090608
  2. TRACLEER [Suspect]
     Indication: PULMONARY ARTERIAL HYPERTENSION
     Dosage: 125 MG, BID, ORAL; 62.5 MG, BID, ORAL
     Route: 048
     Dates: start: 20090609, end: 20090715
  3. OXYGEN (OXYGEN) [Concomitant]
  4. POTASSIUM CHLORIDE [Concomitant]
  5. LASIX [Concomitant]
  6. ATENOLOL (ATNEOLOL) [Concomitant]
  7. LISINOPRIL [Concomitant]
  8. CARDUR (DOXAZOSIN MESILATE) [Concomitant]
  9. ZOCOR [Concomitant]
  10. DUONEB (SALBUTAMOL SULFATE, IPRATROPIUM BROMIDE) [Concomitant]
  11. FENTANYL CITRATE [Concomitant]
  12. LEVOTHYROXINE SODIUM [Concomitant]
  13. AZOPT [Concomitant]
  14. XALATAN [Concomitant]
  15. COUMADIN [Concomitant]
  16. AYR SALINE (SODIUM CHLORIDE) [Concomitant]
  17. ASA (ACETYLSALICYTIC ACID) [Concomitant]

REACTIONS (6)
  - DYSPNOEA [None]
  - FOREIGN BODY [None]
  - GASTROINTESTINAL HAEMORRHAGE [None]
  - LIVER INJURY [None]
  - RENAL DISORDER [None]
  - RENAL IMPAIRMENT [None]
